FAERS Safety Report 9064908 (Version 1)
Quarter: 2013Q1

REPORT INFORMATION
  Report Type: Spontaneous
  Country: GB (occurrence: GB)
  Receive Date: 20130130
  Receipt Date: 20130130
  Transmission Date: 20140127
  Serious: Yes (Disabling, Other)
  Sender: FDA-Public Use
  Company Number: GB-TEVA-382352ISR

PATIENT
  Age: 59 Year
  Sex: Female
  Weight: 90 kg

DRUGS (11)
  1. NITROFURANTOIN [Suspect]
     Indication: ANTIBIOTIC PROPHYLAXIS
     Dosage: 100 MILLIGRAM DAILY;
     Route: 048
     Dates: start: 200812, end: 201012
  2. PANTOPRAZOLE [Concomitant]
     Dosage: 20 MILLIGRAM DAILY;
  3. CODEINE PHOSPHATE [Concomitant]
     Dosage: 240 MILLIGRAM DAILY;
  4. DIAZEPAM [Concomitant]
     Indication: MUSCLE RELAXANT THERAPY
     Dosage: 6 MILLIGRAM DAILY;
  5. KENTERA [Concomitant]
  6. FUROSEMIDE [Concomitant]
     Dosage: 40 MILLIGRAM DAILY;
  7. CARBOCISTEINE [Concomitant]
     Dosage: 1500 MILLIGRAM DAILY; 2 X 375MG CAPSULES THREE TIMES DAILY.
  8. LEVOTHYROXINE [Concomitant]
     Dosage: 175 MICROGRAM DAILY;
  9. PREDNISOLONE [Concomitant]
     Indication: EMPHYSEMA
  10. PREDNISOLONE [Concomitant]
  11. INHALERS [Concomitant]
     Indication: EMPHYSEMA
     Dates: start: 201005

REACTIONS (4)
  - Pulmonary toxicity [Unknown]
  - Pulmonary fibrosis [Not Recovered/Not Resolved]
  - Bronchiectasis [Unknown]
  - Dyspnoea [Unknown]
